FAERS Safety Report 10334141 (Version 1)
Quarter: 2014Q3

REPORT INFORMATION
  Report Type: Report from Study
  Country: US (occurrence: US)
  Receive Date: 20140723
  Receipt Date: 20140723
  Transmission Date: 20150326
  Serious: Yes (Other)
  Sender: FDA-Public Use
  Company Number: US-ROCHE-1439016

PATIENT
  Sex: Male
  Weight: 98.7 kg

DRUGS (7)
  1. FEBUXOSTAT. [Concomitant]
     Active Substance: FEBUXOSTAT
     Route: 048
  2. LEVOTHYROXINE [Concomitant]
     Active Substance: LEVOTHYROXINE
     Route: 048
  3. TESTOSTERONE ENANTHATE. [Concomitant]
     Active Substance: TESTOSTERONE ENANTHATE
     Route: 030
  4. DESMOPRESSIN [Concomitant]
     Active Substance: DESMOPRESSIN
     Dosage: ONE AM AND TWO PM
     Route: 048
  5. NUTROPIN AQ [Suspect]
     Active Substance: SOMATROPIN
     Indication: PRODUCT USED FOR UNKNOWN INDICATION
     Route: 058
  6. COLCHICINE. [Concomitant]
     Active Substance: COLCHICINE
     Route: 048
  7. HYDROCORTISONE. [Concomitant]
     Active Substance: HYDROCORTISONE
     Route: 048

REACTIONS (8)
  - Blood uric acid increased [Unknown]
  - Morphoea [Unknown]
  - Musculoskeletal discomfort [Unknown]
  - Back pain [Unknown]
  - Arthralgia [Unknown]
  - Gouty arthritis [Unknown]
  - Fatigue [Unknown]
  - Myalgia [Unknown]
